FAERS Safety Report 4876870-X (Version None)
Quarter: 2006Q1

REPORT INFORMATION
  Report Type: 
  Country: None (occurrence: None)
  Receive Date: 20060109
  Receipt Date: 20060109
  Transmission Date: 20060701
  Serious: Yes (Other)
  Sender: FDA-Public Use
  Company Number: None

PATIENT
  Age: 73 Year
  Sex: Female
  Weight: 81.1939 kg

DRUGS (9)
  1. TARGRETIN [Suspect]
     Indication: THYROID CANCER METASTATIC
     Dosage: 10 TAB = 768 QD PO
     Route: 048
     Dates: start: 20050808, end: 20051220
  2. TAXOTERE [Suspect]
     Dosage: 48 MG QWK X 3/4 CYCLE IV DRIP
     Route: 041
     Dates: start: 20050808, end: 20051207
  3. LIPITOR [Concomitant]
  4. SYNTHROID [Concomitant]
  5. LOVENOX [Concomitant]
  6. LORAZEPAM [Concomitant]
  7. OXYCODONE [Concomitant]
  8. ARANESP [Concomitant]
  9. MEGESTRAL [Concomitant]

REACTIONS (2)
  - BLOOD TRIGLYCERIDES INCREASED [None]
  - TREATMENT NONCOMPLIANCE [None]
